FAERS Safety Report 7914811-9 (Version None)
Quarter: 2011Q4

REPORT INFORMATION
  Report Type: 
  Country: None (occurrence: None)
  Receive Date: 20111115
  Receipt Date: 20111106
  Transmission Date: 20120403
  Serious: Yes (Other)
  Sender: FDA-Public Use
  Company Number: US-AMGEN-USASP2011045853

PATIENT
  Age: 70 Year
  Sex: Female

DRUGS (11)
  1. PROLIA [Suspect]
     Indication: OSTEOPOROSIS POSTMENOPAUSAL
     Dosage: 60 MG, Q6MO
     Route: 058
     Dates: start: 20110516, end: 20110906
  2. FLUTICASONE PROPIONATE/SALMETEROL [Concomitant]
  3. TIOTROPIUM [Concomitant]
  4. CHOLECALCIFEROL [Concomitant]
  5. BUDESONIDE [Concomitant]
  6. QUETIAPINE FUMARATE [Concomitant]
  7. VITAMIN D [Concomitant]
     Dosage: UNK
     Dates: start: 20040101
  8. ALBUTEROL SULFATE AND IPRATROPIUM BROMIDE [Concomitant]
     Indication: WHEEZING
  9. CLINDAMYCIN [Concomitant]
  10. CALCIUM [Concomitant]
     Dosage: UNK
     Dates: start: 20040101
  11. THEOPHYLLINE [Concomitant]

REACTIONS (7)
  - OSTEONECROSIS OF JAW [None]
  - INFECTION [None]
  - OEDEMA MOUTH [None]
  - INFLAMMATION [None]
  - ACTINOMYCES TEST POSITIVE [None]
  - MEMORY IMPAIRMENT [None]
  - TOOTH EXTRACTION [None]
